FAERS Safety Report 6315129-0 (Version None)
Quarter: 2009Q3

REPORT INFORMATION
  Report Type: 
  Country: None (occurrence: None)
  Receive Date: 20090818
  Receipt Date: 20090818
  Transmission Date: 20100115
  Serious: No
  Sender: FDA-Public Use
  Company Number: None

PATIENT

DRUGS (1)
  1. ADDERALL 10 [Suspect]
     Dosage: 15 MILLIGRAMS
     Dates: start: 20090727, end: 20090803

REACTIONS (5)
  - EYE MOVEMENT DISORDER [None]
  - IRRITABILITY [None]
  - MUSCLE TWITCHING [None]
  - PRODUCT SUBSTITUTION ISSUE [None]
  - VISION BLURRED [None]
